FAERS Safety Report 9372372 (Version 1)
Quarter: 2013Q2

REPORT INFORMATION
  Report Type: Report from Study
  Country: US (occurrence: US)
  Receive Date: 20130627
  Receipt Date: 20130627
  Transmission Date: 20140414
  Serious: Yes (Life-Threatening, Other)
  Sender: FDA-Public Use
  Company Number: US-MYLANLABS-2012S1021998

PATIENT
  Age: 46 Year
  Sex: Male
  Weight: 78.02 kg

DRUGS (16)
  1. CLOZAPINE TABLETS [Suspect]
     Indication: SCHIZOPHRENIA
     Route: 048
     Dates: start: 20111123, end: 20121017
  2. CLOZAPINE TABLETS [Suspect]
     Indication: SCHIZOPHRENIA
     Route: 048
     Dates: start: 20111123, end: 20121017
  3. RISPERIDONE [Concomitant]
     Route: 048
  4. TYLENOL [Concomitant]
     Dosage: PRN
     Route: 048
  5. LIPITOR [Concomitant]
     Route: 048
  6. BENZODIAZEPINE [Concomitant]
     Dosage: PRN
     Route: 048
  7. CLONAZEPAM [Concomitant]
     Dosage: 1/2 TAB AM AND NOON, 1.5 TAB AT 4PM
     Route: 048
  8. BENADRYL [Concomitant]
     Dosage: ONE DALIY AT 4PM AND ONE WEEKLY FOR ECT
     Route: 048
  9. DOCUSATE [Concomitant]
     Route: 048
  10. BENZTROPINE [Concomitant]
     Dosage: AND EVERY 8 HOURS PRN
     Route: 048
  11. FLUOXETINE [Concomitant]
     Dosage: BEFORE NOON
     Route: 048
  12. LACTULOSE [Concomitant]
     Dosage: 15ML AT BEDTIME
     Route: 048
  13. LORAZEPAM [Concomitant]
     Dosage: PRN
     Route: 048
  14. OMEPRAZOLE [Concomitant]
     Route: 048
  15. RISPERIDONE [Concomitant]
     Route: 048
  16. SENNOSIDE [Concomitant]
     Route: 048

REACTIONS (3)
  - Agranulocytosis [Recovered/Resolved]
  - Granulocytopenia [Recovered/Resolved]
  - Leukopenia [Recovered/Resolved]
